FAERS Safety Report 17935291 (Version 1)
Quarter: 2020Q2

REPORT INFORMATION
  Report Type: Spontaneous
  Country: US (occurrence: US)
  Receive Date: 20200624
  Receipt Date: 20200624
  Transmission Date: 20200714
  Serious: No
  Sender: FDA-Public Use
  Company Number: US-MYLANLABS-2020M1056255

PATIENT
  Sex: Female
  Weight: 62 kg

DRUGS (2)
  1. ESTRADIOL. [Suspect]
     Active Substance: ESTRADIOL
     Indication: HYPERHIDROSIS
     Dosage: UNK
     Route: 062
  2. ESTRADIOL TRANSDERMAL SYSTEM [Suspect]
     Active Substance: ESTRADIOL
     Indication: HYPERHIDROSIS
     Dosage: 0.025 MILLIGRAM, QD
     Route: 062

REACTIONS (4)
  - Therapeutic product effect increased [Recovered/Resolved]
  - Swelling [Unknown]
  - Product adhesion issue [Unknown]
  - Off label use [Unknown]
